FAERS Safety Report 12385465 (Version 1)
Quarter: 2016Q2

REPORT INFORMATION
  Report Type: Spontaneous
  Country: CA (occurrence: CA)
  Receive Date: 20160519
  Receipt Date: 20160519
  Transmission Date: 20160815
  Serious: Yes (Other)
  Sender: FDA-Public Use
  Company Number: PHHY2016CA068067

PATIENT
  Age: 57 Year
  Sex: Male

DRUGS (2)
  1. EVEROLIMUS [Suspect]
     Active Substance: EVEROLIMUS
     Indication: CLEAR CELL RENAL CELL CARCINOMA
     Route: 065
  2. PAZOPANIB [Suspect]
     Active Substance: PAZOPANIB
     Indication: CLEAR CELL RENAL CELL CARCINOMA
     Route: 065

REACTIONS (9)
  - Acute kidney injury [Unknown]
  - Blood calcium increased [Unknown]
  - Liver function test increased [Unknown]
  - Drug intolerance [Unknown]
  - Platelet count decreased [Unknown]
  - Hypertension [Unknown]
  - Blood potassium increased [Unknown]
  - Pruritus [Unknown]
  - Rash [Unknown]
